FAERS Safety Report 8834656 (Version 1)
Quarter: 2012Q4

REPORT INFORMATION
  Report Type: 
  Country: AU (occurrence: AU)
  Receive Date: 20121010
  Receipt Date: 20121010
  Transmission Date: 20130627
  Serious: Yes (Other)
  Sender: FDA-Public Use
  Company Number: AU-GLAXOSMITHKLINE-A0996844A

PATIENT
  Age: 55 Year
  Sex: Female

DRUGS (3)
  1. NICORETTE [Suspect]
     Indication: SMOKING CESSATION THERAPY
     Route: 002
  2. NICORETTE [Suspect]
     Indication: SMOKING CESSATION THERAPY
     Route: 002
  3. MOUTHWASH [Concomitant]

REACTIONS (11)
  - Dementia [Unknown]
  - Abnormal behaviour [Unknown]
  - Confusional state [Unknown]
  - Memory impairment [Unknown]
  - Dizziness [Unknown]
  - Syncope [Unknown]
  - Blood alcohol increased [Unknown]
  - Overdose [Unknown]
  - Intentional drug misuse [Unknown]
  - Road traffic accident [Unknown]
  - Drug abuse [Unknown]
